FAERS Safety Report 10418425 (Version 1)
Quarter: 2014Q3

REPORT INFORMATION
  Report Type: Spontaneous
  Country: US (occurrence: None)
  Receive Date: 20140827
  Receipt Date: 20140827
  Transmission Date: 20150326
  Serious: Yes (Death)
  Sender: FDA-Public Use
  Company Number: INS201408-000168

PATIENT
  Age: 40 Year
  Sex: Male

DRUGS (1)
  1. SUBSYS [Suspect]
     Active Substance: FENTANYL
     Indication: BREAKTHROUGH PAIN
     Dosage: 30 UNITS
     Dates: start: 20140619, end: 20140718

REACTIONS (2)
  - Disease complication [None]
  - Hospice care [None]
